FAERS Safety Report 9841272 (Version 1)
Quarter: 2013Q4

REPORT INFORMATION
  Report Type: Spontaneous
  Country: US (occurrence: None)
  Receive Date: 20131219
  Receipt Date: 20131219
  Transmission Date: 20140711
  Serious: Yes (Death, Hospitalization, Disabling)
  Sender: FDA-Public Use
  Company Number: 163-20785-13054715

PATIENT
  Age: 72 Year
  Sex: Female

DRUGS (12)
  1. THALOMID [Suspect]
     Indication: OVARIAN CANCER
     Route: 048
     Dates: start: 20130118, end: 20130204
  2. TOPOTECAN(TOPOTECAN HYDROCHLORIDE)(INJECTION) [Concomitant]
  3. SYNTHROID (LEVOTHYROXINE SODIUM) [Concomitant]
  4. MELATONIN(MELATONIN)(TABLETS) [Concomitant]
  5. COLACE [Concomitant]
  6. ATIVAN(LORAZEPAM) [Concomitant]
  7. CELEXA(CITALOPRAM HYDROBROMIDE) [Concomitant]
  8. FENTANYL(FENTANYL)(POULTICE OR PATCH) [Concomitant]
  9. REQUI(ROPINIROLE HYDROCHLORIDE) [Concomitant]
  10. NEURONTIN(GABAPENTIN) [Concomitant]
  11. EXCEDRIN(EXCEDRIN) [Concomitant]
  12. HYDROCODONE/APAP(VICODIN) [Concomitant]

REACTIONS (4)
  - Ovarian cancer [None]
  - Disease progression [None]
  - Nausea [None]
  - Vomiting [None]
